FAERS Safety Report 10071877 (Version 1)
Quarter: 2014Q2

REPORT INFORMATION
  Report Type: Spontaneous
  Country: GB (occurrence: GB)
  Receive Date: 20140411
  Receipt Date: 20140411
  Transmission Date: 20141212
  Serious: Yes (Life-Threatening, Hospitalization)
  Sender: FDA-Public Use
  Company Number: GB-JNJFOC-20140400352

PATIENT
  Age: 79 Year
  Sex: Male

DRUGS (18)
  1. ZYTIGA [Suspect]
     Indication: PROSTATE CANCER
     Route: 065
     Dates: end: 20140222
  2. GLYCEROL [Concomitant]
     Route: 065
  3. PARACETAMOL [Concomitant]
     Route: 065
  4. SIMVASTATIN [Concomitant]
     Route: 065
  5. OMEPRAZOLE [Concomitant]
     Route: 065
  6. PREDNISOLONE [Concomitant]
     Route: 065
  7. SENNA [Concomitant]
     Route: 065
  8. ASPIRIN [Concomitant]
     Route: 065
  9. AMLODIPINE [Concomitant]
     Route: 065
  10. GABAPENTIN [Concomitant]
     Route: 065
  11. OXYCODONE [Concomitant]
     Indication: PAIN
     Route: 065
  12. SILDENAFIL [Concomitant]
     Route: 065
  13. ALENDRONIC ACID [Concomitant]
     Route: 065
     Dates: end: 20131215
  14. MOVICOL [Concomitant]
     Route: 065
  15. LAXIDO [Concomitant]
  16. ADCAL-D3 [Concomitant]
     Route: 065
  17. OXYCODONE [Concomitant]
     Route: 065
  18. PROSTAP [Concomitant]
     Route: 065

REACTIONS (2)
  - Pneumonitis [Not Recovered/Not Resolved]
  - Eosinophilia [Not Recovered/Not Resolved]
